FAERS Safety Report 5232932-9 (Version None)
Quarter: 2007Q1

REPORT INFORMATION
  Report Type: 
  Country: None (occurrence: None)
  Receive Date: 20061201
  Receipt Date: 20060922
  Transmission Date: 20070707
  Serious: No
  Sender: FDA-Public Use
  Company Number: 2006PV021752

PATIENT
  Age: 48 Year
  Sex: Female
  Weight: 97.977 kg

DRUGS (12)
  1. BYETTA [Suspect]
     Indication: DIABETES MELLITUS NON-INSULIN-DEPENDENT
     Dosage: SEE IMAGE
     Route: 058
     Dates: start: 20060101, end: 20060101
  2. BYETTA [Suspect]
     Indication: DIABETES MELLITUS NON-INSULIN-DEPENDENT
     Dosage: SEE IMAGE
     Route: 058
     Dates: start: 20060101
  3. LEVAQUIN [Suspect]
     Indication: KIDNEY INFECTION
     Dosage: 500 MG;QD;PO
     Route: 048
     Dates: start: 20060908, end: 20060922
  4. ACTOS /USA/ [Concomitant]
  5. TRAZODONE HCL [Concomitant]
  6. EFFEXOR [Concomitant]
  7. CYMBALTA [Concomitant]
  8. NEXIUM [Concomitant]
  9. SINGULAIR [Concomitant]
  10. HORMONE [Concomitant]
  11. INHALER [Concomitant]
  12. AMARYL [Concomitant]

REACTIONS (5)
  - BLOOD GLUCOSE DECREASED [None]
  - BLOOD GLUCOSE INCREASED [None]
  - KIDNEY INFECTION [None]
  - NAUSEA [None]
  - RENAL PAIN [None]
